FAERS Safety Report 25010216 (Version 1)
Quarter: 2025Q1

REPORT INFORMATION
  Report Type: Spontaneous
  Country: DE (occurrence: None)
  Receive Date: 20250225
  Receipt Date: 20250225
  Transmission Date: 20250408
  Serious: Yes (Other)
  Sender: INCYTE
  Company Number: DE-002147023-NVSC2025DE030519

PATIENT
  Age: 70 Year

DRUGS (1)
  1. RUXOLITINIB [Suspect]
     Active Substance: RUXOLITINIB
     Indication: Polycythaemia vera
     Route: 065

REACTIONS (2)
  - Full blood count abnormal [Not Recovered/Not Resolved]
  - Blast cell count increased [Not Recovered/Not Resolved]
